FAERS Safety Report 20655572 (Version 1)
Quarter: 2022Q1

REPORT INFORMATION
  Report Type: Spontaneous
  Country: US (occurrence: US)
  Receive Date: 20220330
  Receipt Date: 20220330
  Transmission Date: 20220423
  Serious: No
  Sender: FDA-Public Use
  Company Number: US-ALLERGAN-2201549US

PATIENT
  Age: 48 Year
  Sex: Female

DRUGS (17)
  1. UBRELVY [Suspect]
     Active Substance: UBROGEPANT
     Indication: Migraine with aura
     Dosage: 1 TAB. AT THE ONSET OF SYMPTOMS, MAY REPEAT ONCE BASED ON RESPONSE AFTER 2 HOURS. (NO MORE THAN 2 TA
     Route: 048
  2. SUCRALFATE [Concomitant]
     Active Substance: SUCRALFATE
  3. LINZESS [Concomitant]
     Active Substance: LINACLOTIDE
  4. AIMOVIG [Concomitant]
     Active Substance: ERENUMAB-AOOE
  5. CLONIDINE HYDROCHLORIDE [Concomitant]
     Active Substance: CLONIDINE HYDROCHLORIDE
  6. ZIPRASIDONE HYDROCHLORIDE [Concomitant]
     Active Substance: ZIPRASIDONE HYDROCHLORIDE
  7. VENLAFAXINE HCL [Concomitant]
     Active Substance: VENLAFAXINE HYDROCHLORIDE
  8. AMLODIPINE BESYLATE;BENAZEPRIL [Concomitant]
  9. CETIRIZINE HCL [Concomitant]
     Active Substance: CETIRIZINE HYDROCHLORIDE
  10. PANTETHINE [Concomitant]
     Active Substance: PANTETHINE
  11. BUSPIRONE HCL [Concomitant]
     Active Substance: BUSPIRONE HYDROCHLORIDE
  12. PROMETHAZINE DM [Concomitant]
     Active Substance: DEXTROMETHORPHAN HYDROBROMIDE\PROMETHAZINE HYDROCHLORIDE
  13. FROVATRIPTAN SUCCINATE [Concomitant]
     Active Substance: FROVATRIPTAN SUCCINATE
  14. TYLENOL EXTRA STRENGTH [Concomitant]
     Active Substance: ACETAMINOPHEN
  15. IBUPROFEN [Concomitant]
     Active Substance: IBUPROFEN
  16. COMPAZINE [Concomitant]
     Active Substance: PROCHLORPERAZINE MALEATE
  17. CEFIXIME [Concomitant]
     Active Substance: CEFIXIME

REACTIONS (1)
  - Migraine [Unknown]
